FAERS Safety Report 8472519-8 (Version None)
Quarter: 2012Q2

REPORT INFORMATION
  Report Type: 
  Country: None (occurrence: None)
  Receive Date: 20120627
  Receipt Date: 20111219
  Transmission Date: 20120825
  Serious: No
  Sender: FDA-Public Use
  Company Number: US-AMGEN-USASP2011063031

PATIENT
  Age: 13 Year
  Sex: Female

DRUGS (1)
  1. PROCRIT [Suspect]
     Indication: ANAEMIA
     Dosage: 0.17 ML, 3 TIMES/WK
     Route: 058

REACTIONS (1)
  - DRUG DOSE OMISSION [None]
